FAERS Safety Report 22774031 (Version 3)
Quarter: 2024Q2

REPORT INFORMATION
  Report Type: Spontaneous
  Country: BR (occurrence: BR)
  Receive Date: 20230801
  Receipt Date: 20240530
  Transmission Date: 20240715
  Serious: Yes (Hospitalization, Other)
  Sender: FDA-Public Use
  Company Number: BR-SA-SAC20230731001137

PATIENT
  Age: 4 Month
  Sex: Female
  Weight: 5.2 kg

DRUGS (2)
  1. SABRIL [Suspect]
     Active Substance: VIGABATRIN
     Indication: Epilepsy
     Dosage: UNK UNK, BID
     Route: 048
     Dates: start: 20230630, end: 20230725
  2. PHENOBARBITAL [Concomitant]
     Active Substance: PHENOBARBITAL
     Indication: Epilepsy
     Dosage: 1 DF, 1X
     Route: 042

REACTIONS (10)
  - Choking [Unknown]
  - Oxygen saturation decreased [Unknown]
  - Crying [Unknown]
  - Muscle spasms [Unknown]
  - Faeces soft [Unknown]
  - Microphthalmos [Unknown]
  - Congenital hyperextension of spine [Unknown]
  - Seizure [Unknown]
  - Nystagmus [Unknown]
  - Somnolence [Recovered/Resolved]

NARRATIVE: CASE EVENT DATE: 20230705
